FAERS Safety Report 8603117-0 (Version None)
Quarter: 2012Q3

REPORT INFORMATION
  Report Type: 
  Country: None (occurrence: None)
  Receive Date: 20120817
  Receipt Date: 20120213
  Transmission Date: 20120928
  Serious: No
  Sender: FDA-Public Use
  Company Number: US-GLAXOSMITHKLINE-A0965606A

PATIENT
  Age: 74 Year
  Sex: Male

DRUGS (2)
  1. CLARITIN [Concomitant]
  2. TAGAMET HB 200 [Suspect]
     Indication: GASTROOESOPHAGEAL REFLUX DISEASE
     Dates: end: 20120212

REACTIONS (2)
  - EPISTAXIS [None]
  - DRUG ADMINISTRATION ERROR [None]
